FAERS Safety Report 7624337-8 (Version None)
Quarter: 2011Q3

REPORT INFORMATION
  Report Type: 
  Country: None (occurrence: None)
  Receive Date: 20110720
  Receipt Date: 20110714
  Transmission Date: 20111222
  Serious: No
  Sender: FDA-Public Use
  Company Number: US-PFIZER INC-2011160293

PATIENT
  Sex: Male

DRUGS (3)
  1. PRISTIQ [Suspect]
     Indication: DEPRESSION
     Dosage: UNK
     Dates: start: 20090101
  2. TRAZODONE HYDROCHLORIDE [Suspect]
     Dosage: UNK
  3. CLONAZEPAM [Suspect]
     Dosage: UNK

REACTIONS (3)
  - ANORGASMIA [None]
  - SEXUAL DYSFUNCTION [None]
  - EJACULATION FAILURE [None]
